FAERS Safety Report 7114083-1 (Version None)
Quarter: 2010Q4

REPORT INFORMATION
  Report Type: 
  Country: None (occurrence: None)
  Receive Date: 20101119
  Receipt Date: 20101111
  Transmission Date: 20110411
  Serious: Yes (Hospitalization)
  Sender: FDA-Public Use
  Company Number: NL-MEDIMMUNE-MEDI-0011717

PATIENT
  Sex: Female

DRUGS (3)
  1. SYNAGIS [Suspect]
     Route: 051
     Dates: start: 20100906, end: 20101004
  2. SYNAGIS [Suspect]
     Route: 051
     Dates: start: 20101028, end: 20101028
  3. SODIUM CHLORIDE SOLUTION [Concomitant]
     Route: 045
     Dates: start: 20101028

REACTIONS (3)
  - RALES [None]
  - SENSE OF OPPRESSION [None]
  - WHEEZING [None]
